FAERS Safety Report 6599660-9 (Version None)
Quarter: 2010Q1

REPORT INFORMATION
  Report Type: 
  Country: None (occurrence: None)
  Receive Date: 20100224
  Receipt Date: 20100215
  Transmission Date: 20100710
  Serious: Yes (Other)
  Sender: FDA-Public Use
  Company Number: JP-ROCHE-686693

PATIENT
  Age: 62 Year
  Sex: Male

DRUGS (4)
  1. AVASTIN [Suspect]
     Indication: LUNG ADENOCARCINOMA
     Route: 041
     Dates: start: 20091222, end: 20100203
  2. OPIUM [Suspect]
     Indication: DRUG USE FOR UNKNOWN INDICATION
     Dosage: DRUG: OPIUM ALKALOIDS PREPARATIONS
     Route: 065
  3. CARBOPLATIN [Suspect]
     Indication: LUNG ADENOCARCINOMA
     Route: 042
  4. PACLITAXEL [Suspect]
     Indication: LUNG ADENOCARCINOMA
     Route: 042

REACTIONS (1)
  - PNEUMOPERITONEUM [None]
